FAERS Safety Report 10561895 (Version 2)
Quarter: 2014Q4

REPORT INFORMATION
  Report Type: Report from Study
  Country: GB (occurrence: GB)
  Receive Date: 20141104
  Receipt Date: 20141104
  Transmission Date: 20150529
  Serious: Yes (Hospitalization)
  Sender: FDA-Public Use
  Company Number: GB-ROCHE-1416359

PATIENT
  Sex: Female

DRUGS (4)
  1. ATENOLOL. [Concomitant]
     Active Substance: ATENOLOL
     Indication: HYPERTENSION
  2. PERINDOPRIL [Concomitant]
     Active Substance: PERINDOPRIL
     Indication: HYPERTENSION
  3. RANIBIZUMAB [Suspect]
     Active Substance: RANIBIZUMAB
     Route: 050
     Dates: start: 20130712, end: 20130712
  4. RANIBIZUMAB [Suspect]
     Active Substance: RANIBIZUMAB
     Indication: AGE-RELATED MACULAR DEGENERATION
     Dosage: DATE OF LAST DOSE RECEICED ON 12/JUL/2013.
     Route: 050
     Dates: start: 20120727, end: 20120727

REACTIONS (5)
  - Aortic stenosis [Recovering/Resolving]
  - Haemolytic anaemia [Not Recovered/Not Resolved]
  - Chest pain [Recovering/Resolving]
  - Jaundice [Unknown]
  - Malaise [Unknown]
